FAERS Safety Report 19499176 (Version 1)
Quarter: 2021Q3

REPORT INFORMATION
  Report Type: Report from Study
  Country: None (occurrence: BE)
  Receive Date: 20210707
  Receipt Date: 20210707
  Transmission Date: 20211014
  Serious: Yes (Hospitalization)
  Sender: FDA-Public Use
  Company Number: BE-ABBVIE-21K-013-3979911-00

PATIENT
  Sex: Male
  Weight: 80 kg

DRUGS (5)
  1. PROLOPA HBS [Concomitant]
     Active Substance: BENSERAZIDE\LEVODOPA
     Indication: PRODUCT USED FOR UNKNOWN INDICATION
     Dosage: AT 8 PM
  2. DUODOPA [Suspect]
     Active Substance: CARBIDOPA\LEVODOPA
     Dosage: MD: 1 ML, CD: 3 ML/H, ED; 2.5 ML, CND: 1.5 ML/H; REMAINS AT 24 HOURS
     Route: 050
     Dates: start: 20210413
  3. STALEVO [Concomitant]
     Active Substance: CARBIDOPA\ENTACAPONE\LEVODOPA
     Indication: PRODUCT USED FOR UNKNOWN INDICATION
     Dosage: AT 8 AM, 11 AM, 5 PM, 8 PM
  4. DUODOPA [Suspect]
     Active Substance: CARBIDOPA\LEVODOPA
     Indication: PARKINSON^S DISEASE
     Route: 050
     Dates: start: 20120813
  5. DUODOPA [Suspect]
     Active Substance: CARBIDOPA\LEVODOPA
     Dosage: MD: 1 ML, CD: 3 ML/H, ED; 2.5 ML, CND: 1.5 ML/H; REMAINS AT 24 HOURS
     Route: 050
     Dates: start: 20210311, end: 20210413

REACTIONS (1)
  - Emergency care [Recovered/Resolved]
